FAERS Safety Report 12858376 (Version 1)
Quarter: 2016Q4

REPORT INFORMATION
  Report Type: Spontaneous
  Country: FR (occurrence: FR)
  Receive Date: 20161018
  Receipt Date: 20161018
  Transmission Date: 20170207
  Serious: Yes (Hospitalization)
  Sender: FDA-Public Use
  Company Number: FR-SA-2016SA188741

PATIENT
  Age: 78 Year
  Sex: Female

DRUGS (19)
  1. ACTISKENAN [Concomitant]
     Active Substance: MORPHINE SULFATE
     Route: 048
  2. LYRICA [Concomitant]
     Active Substance: PREGABALIN
     Dosage: STRENGTH: 25 MG
     Route: 048
  3. TARDYFERON [Concomitant]
     Active Substance: FERROUS SULFATE
     Route: 048
  4. LYRICA [Concomitant]
     Active Substance: PREGABALIN
     Dosage: STRENGTH: 50 MG
     Route: 048
  5. NOVORAPID [Concomitant]
     Active Substance: INSULIN ASPART
     Indication: OESOPHAGITIS
     Route: 058
  6. COAPROVEL [Suspect]
     Active Substance: HYDROCHLOROTHIAZIDE\IRBESARTAN
     Indication: HYPERTENSION
     Route: 048
  7. OXYCONTIN [Concomitant]
     Active Substance: OXYCODONE HYDROCHLORIDE
     Route: 048
  8. DOMPERIDONE [Concomitant]
     Active Substance: DOMPERIDONE
     Route: 048
  9. PAROXETINE. [Concomitant]
     Active Substance: PAROXETINE
     Route: 048
  10. AMLODIPINE [Concomitant]
     Active Substance: AMLODIPINE BESYLATE
     Dosage: STRENGTH: 5 MG
     Route: 048
  11. MOVICOL [Concomitant]
     Active Substance: POLYETHYLENE GLYCOL 3350\POTASSIUM CHLORIDE\SODIUM BICARBONATE\SODIUM CHLORIDE
     Route: 048
  12. LASILIX [Suspect]
     Active Substance: FUROSEMIDE
     Route: 065
  13. LANTUS [Concomitant]
     Active Substance: INSULIN GLARGINE
     Indication: DIABETES MELLITUS
     Route: 058
  14. ALPRAZOLAM. [Concomitant]
     Active Substance: ALPRAZOLAM
     Route: 048
  15. DIFFU K [Concomitant]
     Active Substance: POTASSIUM CHLORIDE
     Route: 048
  16. LASILIX [Suspect]
     Active Substance: FUROSEMIDE
     Route: 065
  17. ESOMEPRAZOLE [Concomitant]
     Active Substance: ESOMEPRAZOLE
     Indication: OESOPHAGITIS
     Dosage: STRENGTH: 20 MG
     Route: 048
  18. BISOCE [Concomitant]
     Active Substance: BISOPROLOL
     Dosage: FORM: FILM COATED DIVISIBLE TABLET
     Route: 048
  19. CALCIPARINE [Concomitant]
     Active Substance: HEPARIN CALCIUM
     Dosage: STRENGTH: 0.4 ML
     Route: 058

REACTIONS (2)
  - Acute kidney injury [Recovered/Resolved]
  - Prerenal failure [Recovered/Resolved]

NARRATIVE: CASE EVENT DATE: 201603
